FAERS Safety Report 15861257 (Version 1)
Quarter: 2019Q1

REPORT INFORMATION
  Report Type: Report from Study
  Country: US (occurrence: US)
  Receive Date: 20190124
  Receipt Date: 20190124
  Transmission Date: 20190417
  Serious: Yes (Disabling, Other)
  Sender: FDA-Public Use
  Company Number: US-ROCHE-2144634

PATIENT
  Age: 58 Year
  Sex: Female
  Weight: 88.98 kg

DRUGS (8)
  1. OCREVUS [Suspect]
     Active Substance: OCRELIZUMAB
     Dosage: SECOND DOSE
     Route: 042
     Dates: start: 20180604
  2. OCREVUS [Suspect]
     Active Substance: OCRELIZUMAB
     Indication: RELAPSING-REMITTING MULTIPLE SCLEROSIS
     Dosage: INFUSE 300MG ONCE, THEN REPEAT IN 2 WEEKS AND THEN 600 MG PER 6 MONTHS (SECOND DOSE: 04/JUN/2018)
     Route: 042
     Dates: start: 20180521
  3. BENADRYL [Concomitant]
     Active Substance: DIPHENHYDRAMINE HYDROCHLORIDE
     Indication: INFUSION SITE REACTION
     Dosage: UNKNOWN
     Route: 065
  4. BENTAL [Concomitant]
  5. GAS-X [Concomitant]
     Active Substance: DIMETHICONE
  6. OCREVUS [Suspect]
     Active Substance: OCRELIZUMAB
     Route: 042
     Dates: start: 20181210
  7. SOLU-MEDROL [Suspect]
     Active Substance: METHYLPREDNISOLONE SODIUM SUCCINATE
     Indication: CONDITION AGGRAVATED
     Dosage: UNKNOWN
     Route: 065
  8. MIRALAX [Concomitant]
     Active Substance: POLYETHYLENE GLYCOL 3350

REACTIONS (23)
  - Emotional disorder [Not Recovered/Not Resolved]
  - Peroneal nerve palsy [Unknown]
  - Cognitive disorder [Not Recovered/Not Resolved]
  - Sleep disorder [Unknown]
  - Feeling abnormal [Unknown]
  - Infusion site reaction [Unknown]
  - Malaise [Unknown]
  - JC polyomavirus test positive [Unknown]
  - Gait disturbance [Unknown]
  - Pruritus [Unknown]
  - Blood pressure abnormal [Unknown]
  - Pain of skin [Unknown]
  - Oedema [Unknown]
  - Condition aggravated [Unknown]
  - Gait disturbance [Not Recovered/Not Resolved]
  - Gastrointestinal motility disorder [Not Recovered/Not Resolved]
  - Flatulence [Unknown]
  - Fatigue [Unknown]
  - Therapeutic response decreased [Unknown]
  - Somnolence [Unknown]
  - Asthenia [Not Recovered/Not Resolved]
  - Drug ineffective [Unknown]
  - Pruritus generalised [Recovered/Resolved with Sequelae]

NARRATIVE: CASE EVENT DATE: 20180521
